FAERS Safety Report 5677082-2 (Version None)
Quarter: 2008Q2

REPORT INFORMATION
  Report Type: 
  Country: None (occurrence: None)
  Receive Date: 20080311
  Receipt Date: 20071206
  Transmission Date: 20081010
  Serious: No
  Sender: FDA-Public Use
  Company Number: 002#2#2007-00313

PATIENT
  Age: 51 Year
  Sex: Female
  Weight: 63.5036 kg

DRUGS (4)
  1. NEUPRO [Suspect]
     Indication: PARKINSON'S DISEASE
     Dosage: 4 MG/24H, 1 IN 1
     Dates: start: 20070801, end: 20070901
  2. NEUPRO [Suspect]
     Indication: PARKINSON'S DISEASE
     Dosage: 4 MG/24H, 1 IN 1
     Dates: start: 20070901, end: 20071127
  3. NEUPRO [Suspect]
     Indication: PARKINSON'S DISEASE
     Dosage: 4 MG/24H, 1 IN 1
     Dates: start: 20071110
  4. STALEVO 100 [Concomitant]

REACTIONS (1)
  - APPLICATION SITE ERYTHEMA [None]
